FAERS Safety Report 17741441 (Version 3)
Quarter: 2021Q2

REPORT INFORMATION
  Report Type: Spontaneous
  Country: US (occurrence: US)
  Receive Date: 20200504
  Receipt Date: 20210614
  Transmission Date: 20210716
  Serious: No
  Sender: FDA-Public Use
  Company Number: US-PFIZER INC-2020177201

PATIENT
  Age: 58 Year
  Sex: Male

DRUGS (2)
  1. PREGABALIN. [Suspect]
     Active Substance: PREGABALIN
     Indication: DIABETIC NEUROPATHY
     Dosage: 25 MG, ONCE A DAY (1 CAPSULE BY MOUTH NIGHTLY)
     Route: 048
  2. LYRICA [Concomitant]
     Active Substance: PREGABALIN
     Indication: LIMB DISCOMFORT
     Dosage: 25MG, ONCE A DAY, (1 CAPSULE, ONCE A DAY IN THE EVENING (QPM) AT NIGHT)

REACTIONS (1)
  - Drug ineffective [Unknown]
